FAERS Safety Report 5758655-5 (Version None)
Quarter: 2008Q2

REPORT INFORMATION
  Report Type: 
  Country: None (occurrence: None)
  Receive Date: 20080507
  Receipt Date: 20070817
  Transmission Date: 20081010
  Serious: Yes (Other)
  Sender: FDA-Public Use
  Company Number: 236971K07USA

PATIENT
  Age: 62 Year
  Sex: Female

DRUGS (4)
  1. REBIF [Suspect]
     Indication: MULTIPLE SCLEROSIS
     Dosage: 44 MCG, 3 IN 1 WEEKS, SUBCUTANEOUS
     Route: 058
     Dates: start: 20070101, end: 20070813
  2. NEXIUM [Concomitant]
  3. DITROPAN (OXYBUTYNIN /0053801/) [Concomitant]
  4. SYNTHROID [Concomitant]

REACTIONS (14)
  - ABNORMAL FAECES [None]
  - ALANINE AMINOTRANSFERASE INCREASED [None]
  - ASPARTATE AMINOTRANSFERASE INCREASED [None]
  - ASTHENIA [None]
  - BLOOD ALKALINE PHOSPHATASE INCREASED [None]
  - CHILLS [None]
  - FATIGUE [None]
  - GAIT DISTURBANCE [None]
  - HEADACHE [None]
  - HEPATIC ENZYME INCREASED [None]
  - JAUNDICE [None]
  - PLATELET COUNT DECREASED [None]
  - PYREXIA [None]
  - TREMOR [None]
